FAERS Safety Report 5938453-X (Version None)
Quarter: 2008Q4

REPORT INFORMATION
  Report Type: 
  Country: None (occurrence: None)
  Receive Date: 20081103
  Receipt Date: 20081023
  Transmission Date: 20090506
  Serious: Yes (Other)
  Sender: FDA-Public Use
  Company Number: CA-AMGEN-QUU315313

PATIENT
  Age: 57 Year
  Sex: Female
  Weight: 79 kg

DRUGS (7)
  1. NEUPOGEN [Suspect]
     Indication: CHEMOTHERAPY
     Route: 058
  2. CYCLOPHOSPHAMIDE [Concomitant]
     Route: 042
  3. DEXAMETHASONE [Concomitant]
     Route: 048
  4. DIMENHYDRINATE [Concomitant]
     Route: 048
  5. EPIRUBICIN HYDROCHLORIDE [Concomitant]
     Route: 042
  6. FLUOROURACIL [Concomitant]
     Route: 042
  7. ONDANSETRON [Concomitant]
     Route: 048

REACTIONS (5)
  - BACK PAIN [None]
  - DIARRHOEA [None]
  - INFLUENZA LIKE ILLNESS [None]
  - INSOMNIA [None]
  - MUSCLE SPASMS [None]
